FAERS Safety Report 9695697 (Version 1)
Quarter: 2013Q4

REPORT INFORMATION
  Report Type: Spontaneous
  Country: US (occurrence: None)
  Receive Date: 20131118
  Receipt Date: 20131118
  Transmission Date: 20140711
  Serious: Yes (Disabling)
  Sender: FDA-Public Use
  Company Number: None

PATIENT
  Age: 53 Year
  Sex: Female
  Weight: 56.7 kg

DRUGS (1)
  1. BOTOX [Suspect]
     Indication: SKIN COSMETIC PROCEDURE
     Route: 030
     Dates: start: 20101119, end: 20131113

REACTIONS (4)
  - Paraesthesia [None]
  - Hypoaesthesia [None]
  - Muscle spasms [None]
  - Headache [None]
